FAERS Safety Report 14034198 (Version 1)
Quarter: 2017Q4

REPORT INFORMATION
  Report Type: Spontaneous
  Country: US (occurrence: US)
  Receive Date: 20171003
  Receipt Date: 20171003
  Transmission Date: 20180321
  Serious: No
  Sender: FDA-Public Use
  Company Number: US-TEVA-720794ACC

PATIENT
  Age: 70 Year
  Sex: Female

DRUGS (11)
  1. LEFLUNOMIDE 20 [Concomitant]
  2. DILTIAZEM 24HR ER 360 [Concomitant]
  3. HYDROCHLOROTHIAZIDE 25 [Concomitant]
  4. LOSARTAN 50 [Concomitant]
     Active Substance: LOSARTAN
  5. CLONAZEPAM. [Suspect]
     Active Substance: CLONAZEPAM
  6. PANTOPRAZOLE 40 [Concomitant]
     Active Substance: PANTOPRAZOLE SODIUM
  7. ACIDOPHILUS 100 [Concomitant]
  8. TRAVATAN Z [Concomitant]
     Active Substance: TRAVOPROST
  9. GABAPENTIN 600 [Concomitant]
  10. ESCITALOPRAM 20 [Concomitant]
  11. CYCLOBENZAPRINE 10 [Concomitant]

REACTIONS (1)
  - Drug screen negative [Unknown]

NARRATIVE: CASE EVENT DATE: 201702
